FAERS Safety Report 24566256 (Version 3)
Quarter: 2025Q1

REPORT INFORMATION
  Report Type: Spontaneous
  Country: US (occurrence: US)
  Receive Date: 20241030
  Receipt Date: 20250307
  Transmission Date: 20250408
  Serious: Yes (Other)
  Sender: MERCK SHARP & DOHME LLC
  Company Number: US-009507513-2410USA012755

PATIENT
  Age: 72 Year
  Sex: Female

DRUGS (2)
  1. KEYTRUDA [Suspect]
     Active Substance: PEMBROLIZUMAB
     Indication: Endometrial cancer
     Route: 042
     Dates: start: 20240917
  2. LENVATINIB MESYLATE [Suspect]
     Active Substance: LENVATINIB MESYLATE
     Indication: Endometrial cancer
     Route: 048
     Dates: start: 20240831

REACTIONS (11)
  - Hypothyroidism [Recovered/Resolved]
  - Alopecia [Recovering/Resolving]
  - Infusion site bruising [Unknown]
  - Pain in extremity [Unknown]
  - Joint swelling [Unknown]
  - Peripheral swelling [Unknown]
  - Oral discomfort [Recovered/Resolved]
  - Tongue discomfort [Recovered/Resolved]
  - Skin mass [Unknown]
  - Pain in extremity [Unknown]
  - Product use issue [Unknown]

NARRATIVE: CASE EVENT DATE: 20241001
